FAERS Safety Report 10657443 (Version 1)
Quarter: 2014Q4

REPORT INFORMATION
  Report Type: Spontaneous
  Country: RU (occurrence: None)
  Receive Date: 20141215
  Receipt Date: 20141215
  Transmission Date: 20150529
  Serious: Yes (Hospitalization, Other)
  Sender: FDA-Public Use
  Company Number: RU2014GSK033936

PATIENT
  Sex: Female

DRUGS (2)
  1. KIVEXA [Suspect]
     Active Substance: ABACAVIR SULFATE\LAMIVUDINE
     Indication: HIV INFECTION
     Dates: start: 20140926
  2. REYATAZ [Suspect]
     Active Substance: ATAZANAVIR SULFATE
     Indication: HIV INFECTION
     Dates: start: 20140926

REACTIONS (9)
  - Pyelonephritis [None]
  - Back pain [None]
  - Cough [None]
  - Pyrexia [None]
  - Abdominal pain [None]
  - Nausea [None]
  - Dizziness [None]
  - Drug hypersensitivity [None]
  - Cystitis [None]

NARRATIVE: CASE EVENT DATE: 201409
